FAERS Safety Report 19906571 (Version 1)
Quarter: 2021Q4

REPORT INFORMATION
  Report Type: Spontaneous
  Country: US (occurrence: US)
  Receive Date: 20211001
  Receipt Date: 20211001
  Transmission Date: 20220303
  Serious: No
  Sender: FDA-Public Use
  Company Number: None

PATIENT
  Age: 71 Year
  Sex: Male
  Weight: 75 kg

DRUGS (1)
  1. PEMBROLIZUMAB [Suspect]
     Active Substance: PEMBROLIZUMAB
     Indication: Lung neoplasm malignant
     Dosage: ?          OTHER FREQUENCY:UNKNOWN;OTHER ROUTE:IV
     Dates: start: 20201104, end: 20210728

REACTIONS (4)
  - Diarrhoea [None]
  - Dehydration [None]
  - Electrolyte imbalance [None]
  - Hypotension [None]

NARRATIVE: CASE EVENT DATE: 20210908
